FAERS Safety Report 19256583 (Version 1)
Quarter: 2021Q2

REPORT INFORMATION
  Report Type: Other
  Country: ES (occurrence: US)
  Receive Date: 20210514
  Receipt Date: 20210514
  Transmission Date: 20210717
  Serious: Yes (Life-Threatening, Other)
  Sender: FDA-Public Use
  Company Number: ES-CELLTRION INC.-2019US028767

PATIENT

DRUGS (33)
  1. RITUXIMAB (UNKNOWN) [Suspect]
     Active Substance: RITUXIMAB
     Dosage: UNK (DOSAGE FORM: UNSPECIFIED)
     Route: 065
     Dates: start: 201705, end: 20190102
  2. VENETOCLAX. [Suspect]
     Active Substance: VENETOCLAX
     Indication: CHRONIC LYMPHOCYTIC LEUKAEMIA
     Dosage: 20 MG, QD
     Route: 048
     Dates: start: 20190104, end: 20190107
  3. IMBRUVICA [Suspect]
     Active Substance: IBRUTINIB
     Indication: CHRONIC LYMPHOCYTIC LEUKAEMIA
     Dosage: UNK
     Route: 048
     Dates: start: 201705, end: 20190102
  4. RITUXIMAB (UNKNOWN) [Suspect]
     Active Substance: RITUXIMAB
     Dosage: UNK (PHARMACEUTICAL DOSE FORM: INJECTION)
     Route: 065
  5. VENETOCLAX. [Suspect]
     Active Substance: VENETOCLAX
     Dosage: UNK
     Route: 048
     Dates: start: 20190225, end: 201903
  6. VENETOCLAX. [Suspect]
     Active Substance: VENETOCLAX
     Dosage: 20 MG, QD
     Route: 048
     Dates: start: 20190104, end: 20190107
  7. VENETOCLAX. [Suspect]
     Active Substance: VENETOCLAX
     Dosage: 20 MG, QD
     Route: 048
     Dates: start: 20190104, end: 20190107
  8. VENETOCLAX. [Suspect]
     Active Substance: VENETOCLAX
     Dosage: 20 MG, QD
     Route: 048
     Dates: start: 20190104, end: 20190107
  9. VENETOCLAX. [Suspect]
     Active Substance: VENETOCLAX
     Dosage: 20 MG, QD (DOSAGE FORM: UNSPECIFIED)
     Route: 048
     Dates: start: 20190104, end: 20190107
  10. VENETOCLAX. [Suspect]
     Active Substance: VENETOCLAX
     Dosage: UNK
     Route: 048
     Dates: start: 20190205, end: 201903
  11. RITUXIMAB. [Suspect]
     Active Substance: RITUXIMAB
     Dosage: UNK
     Route: 065
     Dates: start: 20131104, end: 20140804
  12. VENETOCLAX. [Suspect]
     Active Substance: VENETOCLAX
     Indication: CHRONIC LYMPHOCYTIC LEUKAEMIA
     Dosage: 20 MG, QD
     Route: 048
     Dates: start: 20190104, end: 20190107
  13. VENETOCLAX. [Suspect]
     Active Substance: VENETOCLAX
     Dosage: UNK (DOSAGE FORM: UNSPECIFIED)
     Route: 048
     Dates: start: 20190225, end: 201903
  14. VENETOCLAX. [Suspect]
     Active Substance: VENETOCLAX
     Indication: CHRONIC LYMPHOCYTIC LEUKAEMIA
     Dosage: 20 MG
     Route: 048
     Dates: start: 20190104, end: 20190107
  15. IMBRUVICA [Suspect]
     Active Substance: IBRUTINIB
     Indication: CHRONIC LYMPHOCYTIC LEUKAEMIA
     Dosage: UNK
     Route: 048
     Dates: start: 201705, end: 20190102
  16. RITUXIMAB (UNKNOWN) [Suspect]
     Active Substance: RITUXIMAB
     Dosage: UNK
     Route: 065
     Dates: start: 201508, end: 201602
  17. RITUXIMAB (UNKNOWN) [Suspect]
     Active Substance: RITUXIMAB
     Dosage: UNK (DOSAGE FORM: UNSPECIFIED)
     Route: 065
     Dates: start: 201705, end: 20190102
  18. VENETOCLAX. [Suspect]
     Active Substance: VENETOCLAX
     Dosage: 20 MG, QD
     Route: 048
     Dates: start: 20190104, end: 20190107
  19. VENETOCLAX. [Suspect]
     Active Substance: VENETOCLAX
     Dosage: UNK
     Route: 048
     Dates: start: 20190205, end: 201903
  20. IBRUTINIB [Suspect]
     Active Substance: IBRUTINIB
     Indication: CHRONIC LYMPHOCYTIC LEUKAEMIA
     Dosage: UNK
     Route: 048
     Dates: start: 201705, end: 20190102
  21. RITUXIMAB (UNKNOWN) [Suspect]
     Active Substance: RITUXIMAB
     Dosage: UNK
     Route: 065
     Dates: start: 201508, end: 201602
  22. VENETOCLAX. [Suspect]
     Active Substance: VENETOCLAX
     Dosage: UNK (DOSAGE FORM: UNSPECIFIED)
     Route: 048
     Dates: start: 20190205, end: 201903
  23. VENETOCLAX. [Suspect]
     Active Substance: VENETOCLAX
     Dosage: 20 MG, QD
     Route: 048
     Dates: start: 20190104, end: 20190107
  24. IMBRUVICA [Suspect]
     Active Substance: IBRUTINIB
     Dosage: UNK
     Route: 048
     Dates: start: 201705
  25. RITUXIMAB. [Suspect]
     Active Substance: RITUXIMAB
     Indication: CHRONIC LYMPHOCYTIC LEUKAEMIA
     Dosage: UNK
     Route: 065
     Dates: start: 20131104, end: 20140804
  26. RITUXIMAB (UNKNOWN) [Suspect]
     Active Substance: RITUXIMAB
     Dosage: UNK (DOSAGE FORM: UNSPECIFIED)
     Route: 065
     Dates: start: 201705, end: 20190102
  27. RITUXIMAB (UNKNOWN) [Suspect]
     Active Substance: RITUXIMAB
     Dosage: UNK (PHARMACEUTICAL DOSE FORM: INJECTION)
     Route: 065
  28. VENETOCLAX. [Suspect]
     Active Substance: VENETOCLAX
     Dosage: UNK
     Route: 048
     Dates: start: 20190225, end: 201903
  29. VENETOCLAX. [Suspect]
     Active Substance: VENETOCLAX
     Dosage: 20 MG, QD
     Route: 048
     Dates: start: 20190104, end: 20190107
  30. VENETOCLAX. [Suspect]
     Active Substance: VENETOCLAX
     Dosage: 20 MG, QD (DOSAGE FORM: UNSPECIFIED)
     Route: 048
     Dates: start: 20190104, end: 20190107
  31. IMBRUVICA [Suspect]
     Active Substance: IBRUTINIB
     Dosage: UNK
     Route: 048
     Dates: start: 201705, end: 20190102
  32. RITUXIMAB. [Suspect]
     Active Substance: RITUXIMAB
     Dosage: UNK
     Route: 065
     Dates: start: 20131104, end: 20140804
  33. RITUXIMAB (UNKNOWN) [Suspect]
     Active Substance: RITUXIMAB
     Indication: CHRONIC LYMPHOCYTIC LEUKAEMIA
     Dosage: UNK
     Route: 065
     Dates: start: 201508, end: 201602

REACTIONS (16)
  - Leukocytosis [Unknown]
  - Tumour lysis syndrome [Unknown]
  - Cholestasis [Unknown]
  - Chronic lymphocytic leukaemia [Unknown]
  - Blood lactate dehydrogenase increased [Unknown]
  - Liver disorder [Unknown]
  - Oedema peripheral [Unknown]
  - Lymphadenopathy [Unknown]
  - Campylobacter gastroenteritis [Unknown]
  - Diarrhoea [Unknown]
  - Streptococcus test positive [Unknown]
  - Neutropenia [Recovered/Resolved]
  - Aphasia [Recovered/Resolved]
  - Richter^s syndrome [Unknown]
  - Hyperhidrosis [Unknown]
  - Hepatosplenomegaly [Unknown]

NARRATIVE: CASE EVENT DATE: 2019
